FAERS Safety Report 4774800-2 (Version None)
Quarter: 2005Q3

REPORT INFORMATION
  Report Type: 
  Country: None (occurrence: None)
  Receive Date: 20050919
  Receipt Date: 20050906
  Transmission Date: 20060218
  Serious: Yes (Disabling, Other)
  Sender: FDA-Public Use
  Company Number: 2005107116

PATIENT
  Sex: Male
  Weight: 100.2449 kg

DRUGS (6)
  1. VIAGRA [Suspect]
     Indication: ERECTILE DYSFUNCTION
     Dosage: (100 MG, AS NECESSARY)
  2. OXYCONTIN [Suspect]
     Indication: ILL-DEFINED DISORDER
  3. OPIOIDS (OPIOIDS) [Suspect]
     Indication: ILL-DEFINED DISORDER
  4. WELLBUTRIN [Concomitant]
  5. PREVACID [Concomitant]
  6. PROMETHAZINE [Concomitant]

REACTIONS (7)
  - ABNORMAL BEHAVIOUR [None]
  - ACCIDENT AT WORK [None]
  - DRUG EFFECT INCREASED [None]
  - FLUSHING [None]
  - INTERVERTEBRAL DISC PROTRUSION [None]
  - NERVE INJURY [None]
  - OCULAR HYPERAEMIA [None]
